FAERS Safety Report 9502658 (Version 1)
Quarter: 2013Q3

REPORT INFORMATION
  Report Type: Spontaneous
  Country: NL (occurrence: NL)
  Receive Date: 20130906
  Receipt Date: 20130906
  Transmission Date: 20140515
  Serious: Yes (Disabling)
  Sender: FDA-Public Use
  Company Number: NL-ACCORD-019218

PATIENT
  Age: 55 Year
  Sex: Female

DRUGS (2)
  1. LETROZOLE [Suspect]
     Indication: PRODUCT USED FOR UNKNOWN INDICATION
     Dates: start: 201211
  2. THYRAX [Concomitant]

REACTIONS (2)
  - Muscle spasms [Unknown]
  - Asthenia [Unknown]
